FAERS Safety Report 8198037-2 (Version None)
Quarter: 2012Q1

REPORT INFORMATION
  Report Type: 
  Country: None (occurrence: None)
  Receive Date: 20120309
  Receipt Date: 20120305
  Transmission Date: 20120608
  Serious: Yes (Life-Threatening, Other)
  Sender: FDA-Public Use
  Company Number: US-JNJFOC-20120202565

PATIENT
  Sex: Female
  Weight: 74.8 kg

DRUGS (13)
  1. FLEXERIL [Concomitant]
  2. TYLENOL [Concomitant]
  3. OSCAL NOS [Concomitant]
  4. CO-Q10 [Concomitant]
  5. DIOVAN HCT [Concomitant]
  6. FENTANYL PCN [Concomitant]
     Dates: start: 20120124, end: 20120126
  7. ZOFRAN [Concomitant]
  8. NIACIN [Concomitant]
  9. XARELTO [Suspect]
     Indication: KNEE ARTHROPLASTY
     Route: 048
     Dates: start: 20120124, end: 20120125
  10. LOVAZA [Concomitant]
  11. PROTONIX [Concomitant]
  12. MILK OF MAGNESIA TAB [Concomitant]
  13. SENNA [Concomitant]

REACTIONS (1)
  - PULMONARY EMBOLISM [None]
